FAERS Safety Report 18125038 (Version 3)
Quarter: 2020Q3

REPORT INFORMATION
  Report Type: Spontaneous
  Country: US (occurrence: US)
  Receive Date: 20200807
  Receipt Date: 20200820
  Transmission Date: 20201103
  Serious: Yes (Hospitalization)
  Sender: FDA-Public Use
  Company Number: US-ACTELION-A-US2020-207867

PATIENT
  Sex: Female
  Weight: 71.2 kg

DRUGS (7)
  1. OPSUMIT [Suspect]
     Active Substance: MACITENTAN
     Indication: PULMONARY ARTERIAL HYPERTENSION
     Dosage: 10 MG, QD
     Route: 048
     Dates: start: 20151028
  2. ADEMPAS [Suspect]
     Active Substance: RIOCIGUAT
     Indication: PRODUCT USED FOR UNKNOWN INDICATION
     Route: 065
  3. VELETRI [Suspect]
     Active Substance: EPOPROSTENOL
     Indication: PULMONARY ARTERIAL HYPERTENSION
     Dosage: 20 NG/KG, PER MIN
     Route: 042
  4. AMLODIPINE [Concomitant]
     Active Substance: AMLODIPINE BESYLATE
  5. UPTRAVI [Suspect]
     Active Substance: SELEXIPAG
     Indication: PULMONARY ARTERIAL HYPERTENSION
     Dosage: 1000 MCG, BID
     Route: 048
  6. SILDENAFIL. [Concomitant]
     Active Substance: SILDENAFIL
  7. WARFARIN [Concomitant]
     Active Substance: WARFARIN

REACTIONS (16)
  - Packed red blood cell transfusion [Unknown]
  - Biopsy liver [Unknown]
  - Right ventricular dysfunction [Unknown]
  - Dyspnoea [Recovering/Resolving]
  - Anaemia [Recovering/Resolving]
  - Pulmonary arterial hypertension [Unknown]
  - Disease complication [Unknown]
  - Oliguria [Unknown]
  - Vomiting [Recovering/Resolving]
  - Hepatic haematoma [Recovering/Resolving]
  - Ventilation perfusion mismatch [Recovering/Resolving]
  - Hepatic artery embolism [Recovering/Resolving]
  - Nausea [Recovering/Resolving]
  - Hypotension [Unknown]
  - Hypoxia [Unknown]
  - Transplant evaluation [Unknown]
